FAERS Safety Report 5736300-2 (Version None)
Quarter: 2008Q2

REPORT INFORMATION
  Report Type: 
  Country: None (occurrence: None)
  Receive Date: 20080508
  Receipt Date: 20080422
  Transmission Date: 20081010
  Serious: Yes (Hospitalization)
  Sender: FDA-Public Use
  Company Number: S08-FRA-01564-01

PATIENT
  Age: 82 Year
  Sex: Female

DRUGS (6)
  1. MEMANTINE HCL [Suspect]
     Indication: DEMENTIA ALZHEIMER'S TYPE
     Dosage: 10 MG BID PO
     Route: 048
     Dates: end: 20080101
  2. MODUCREN [Suspect]
     Indication: HYPERTENSION
     Dosage: 1 QD PO
     Route: 048
     Dates: end: 20080101
  3. ARICEPT [Suspect]
     Indication: DEMENTIA ALZHEIMER'S TYPE
     Dosage: 10 MG QD PO
     Route: 048
     Dates: end: 20080101
  4. TANAKAN (GINKGO BILOBA EXTRACT) [Suspect]
     Dosage: 3 QD PO
     Route: 048
     Dates: end: 20080101
  5. LANSOPRAZOLE [Suspect]
     Dosage: 15 MG QD PO
     Route: 048
     Dates: end: 20080101
  6. DITROPAN [Suspect]
     Indication: URINARY INCONTINENCE
     Dosage: 1 QD PO
     Route: 048
     Dates: end: 20080101

REACTIONS (7)
  - BLOOD CREATININE INCREASED [None]
  - BLOOD GLUCOSE INCREASED [None]
  - BLOOD UREA INCREASED [None]
  - BRADYCARDIA [None]
  - LOSS OF CONSCIOUSNESS [None]
  - MALAISE [None]
  - ORTHOSTATIC HYPOTENSION [None]
